FAERS Safety Report 5191178-3 (Version None)
Quarter: 2006Q4

REPORT INFORMATION
  Report Type: 
  Country: None (occurrence: None)
  Receive Date: 20061226
  Receipt Date: 20061215
  Transmission Date: 20070319
  Serious: Yes (Life-Threatening, Disabling, Other)
  Sender: FDA-Public Use
  Company Number: US-PURDUE-USA_2006_0026002

PATIENT
  Sex: Female

DRUGS (2)
  1. OXYCONTIN [Suspect]
     Indication: OVARIAN CYST
     Route: 055
     Dates: start: 19890101
  2. HEROIN [Suspect]
     Indication: DRUG ABUSER

REACTIONS (13)
  - ABASIA [None]
  - APHASIA [None]
  - CHILLS [None]
  - COMA [None]
  - DIARRHOEA [None]
  - DRUG DEPENDENCE [None]
  - FRACTURE [None]
  - INTENTIONAL DRUG MISUSE [None]
  - MONOPLEGIA [None]
  - ROAD TRAFFIC ACCIDENT [None]
  - SUBSTANCE ABUSE [None]
  - TRAUMATIC BRAIN INJURY [None]
  - TREMOR [None]
